FAERS Safety Report 23566128 (Version 3)
Quarter: 2024Q2

REPORT INFORMATION
  Report Type: Report from Study
  Country: RO (occurrence: RO)
  Receive Date: 20240226
  Receipt Date: 20240408
  Transmission Date: 20240715
  Serious: Yes (Death, Hospitalization, Other)
  Sender: FDA-Public Use
  Company Number: RO-BAYER-2024A026617

PATIENT
  Sex: Male

DRUGS (4)
  1. NEXAVAR [Suspect]
     Active Substance: SORAFENIB
     Dosage: UNK
  2. STIVARGA [Concomitant]
     Active Substance: REGORAFENIB
     Dosage: UNK
  3. DIUREX WATER PILLS [Concomitant]
     Active Substance: CAFFEINE\MAGNESIUM SALICYLATE
     Dosage: UNK
  4. RILMENIDINE [Concomitant]
     Active Substance: RILMENIDINE
     Dosage: UNK

REACTIONS (8)
  - Hepatic cirrhosis [Fatal]
  - Gastric polyps [None]
  - Haematochezia [None]
  - Disease progression [None]
  - Stent placement [None]
  - Cardiac disorder [None]
  - Blood pressure fluctuation [None]
  - Hyperhidrosis [None]
